FAERS Safety Report 23783191 (Version 2)
Quarter: 2024Q2

REPORT INFORMATION
  Report Type: Report from Study
  Country: CA (occurrence: CA)
  Receive Date: 20240425
  Receipt Date: 20240509
  Transmission Date: 20240716
  Serious: Yes (Death, Other)
  Sender: FDA-Public Use
  Company Number: CA-GILEAD-2024-0664154

PATIENT
  Sex: Female

DRUGS (9)
  1. SACITUZUMAB GOVITECAN-HZIY [Suspect]
     Active Substance: SACITUZUMAB GOVITECAN-HZIY
     Indication: Hormone receptor positive HER2 negative breast cancer
     Dosage: 490 MG
     Route: 042
     Dates: start: 20240222
  2. SACITUZUMAB GOVITECAN-HZIY [Suspect]
     Active Substance: SACITUZUMAB GOVITECAN-HZIY
     Indication: Breast cancer metastatic
     Dosage: 470 MG
     Route: 042
     Dates: start: 20240222, end: 20240321
  3. ACETAMINOPHEN [Concomitant]
     Active Substance: ACETAMINOPHEN
     Dosage: 650 MG (PRIOR TRODELVY INFUSION)
     Route: 048
  4. ACETAMINOPHEN [Concomitant]
     Active Substance: ACETAMINOPHEN
     Dosage: 650 MG PO (PRIOR TRODELVY INFUSION)
  5. RANITIDINE [Concomitant]
     Active Substance: RANITIDINE
     Dosage: 10 (PRIOR TRODELVY INFUSION)
     Route: 048
  6. RANITIDINE [Concomitant]
     Active Substance: RANITIDINE
     Dosage: 10 MG PO (PRIOR TRODELVY INFUSION)
  7. DECADRON [Concomitant]
     Active Substance: DEXAMETHASONE
     Dosage: 8 MG (PRIOR TRODELVY INFUSION)
     Route: 048
  8. DEXAMETHASONE [Concomitant]
     Active Substance: DEXAMETHASONE
     Dosage: 08 MG PO (PRIOR TRODELVY INFUSION)
     Route: 048
  9. DEXAMETHASONE [Concomitant]
     Active Substance: DEXAMETHASONE
     Dosage: 08 MG PO (PRIOR TRODELVY INFUSION)

REACTIONS (6)
  - Death [Fatal]
  - Disease progression [Unknown]
  - Weight fluctuation [Unknown]
  - Heart rate increased [Unknown]
  - Localised infection [Unknown]
  - Malaise [Unknown]
